FAERS Safety Report 5804977-9 (Version None)
Quarter: 2008Q3

REPORT INFORMATION
  Report Type: 
  Country: None (occurrence: None)
  Receive Date: 20080709
  Receipt Date: 20080627
  Transmission Date: 20090109
  Serious: Yes (Other)
  Sender: FDA-Public Use
  Company Number: JP-PFIZER INC-2008054641

PATIENT
  Sex: Male

DRUGS (4)
  1. GABAPEN [Suspect]
     Indication: POST HERPETIC NEURALGIA
     Dosage: DAILY DOSE:600MG
     Route: 048
  2. TEGRETOL [Concomitant]
     Route: 048
  3. TRYPTANOL [Concomitant]
     Route: 048
  4. CYANOCOBALAMIN [Concomitant]
     Route: 048

REACTIONS (3)
  - DERMATITIS EXFOLIATIVE [None]
  - DRUG ERUPTION [None]
  - RENAL TUBULAR NECROSIS [None]
